FAERS Safety Report 17819872 (Version 2)
Quarter: 2020Q2

REPORT INFORMATION
  Report Type: Spontaneous
  Country: MX (occurrence: MX)
  Receive Date: 20200524
  Receipt Date: 20200630
  Transmission Date: 20200714
  Serious: Yes (Other)
  Sender: FDA-Public Use
  Company Number: MX-NOVOPROD-725321

PATIENT
  Age: 9 Year
  Sex: Male

DRUGS (34)
  1. NOVOEIGHT [Suspect]
     Active Substance: ANTIHEMOPHILIC FACTOR, HUMAN RECOMBINANT
     Dosage: 1000IU (1 VIAL OF 1000IU)
     Route: 042
     Dates: start: 20200406
  2. NOVOEIGHT [Suspect]
     Active Substance: ANTIHEMOPHILIC FACTOR, HUMAN RECOMBINANT
     Dosage: 1000IU (1 VIAL OF 1000IU)
     Route: 042
     Dates: start: 20200409
  3. NOVOEIGHT [Suspect]
     Active Substance: ANTIHEMOPHILIC FACTOR, HUMAN RECOMBINANT
     Dosage: 1000IU (1 VIAL OF 1000IU)
     Route: 042
     Dates: start: 20200413
  4. NOVOEIGHT [Suspect]
     Active Substance: ANTIHEMOPHILIC FACTOR, HUMAN RECOMBINANT
     Dosage: 1000IU (1 VIAL OF 1000IU)
     Route: 042
     Dates: start: 20200418
  5. NOVOEIGHT [Suspect]
     Active Substance: ANTIHEMOPHILIC FACTOR, HUMAN RECOMBINANT
     Dosage: 1000IU (1 VIAL OF 1000IU)
     Route: 042
     Dates: start: 20200427
  6. NOVOEIGHT [Suspect]
     Active Substance: ANTIHEMOPHILIC FACTOR, HUMAN RECOMBINANT
     Dosage: 1000IU (1 VIAL OF 1000IU)
     Route: 042
     Dates: start: 20200527
  7. NOVOEIGHT [Suspect]
     Active Substance: ANTIHEMOPHILIC FACTOR, HUMAN RECOMBINANT
     Dosage: 1000IU (1 VIAL OF 1000IU)
     Route: 042
     Dates: start: 20200530
  8. NOVOEIGHT [Suspect]
     Active Substance: ANTIHEMOPHILIC FACTOR, HUMAN RECOMBINANT
     Dosage: 1000IU (1 VIAL OF 1000IU)
     Route: 042
     Dates: start: 20200415
  9. NOVOEIGHT [Suspect]
     Active Substance: ANTIHEMOPHILIC FACTOR, HUMAN RECOMBINANT
     Dosage: 1000IU (1 VIAL OF 1000IU)
     Route: 042
     Dates: start: 20200509
  10. NOVOEIGHT [Suspect]
     Active Substance: ANTIHEMOPHILIC FACTOR, HUMAN RECOMBINANT
     Dosage: 1000IU (1 VIAL OF 1000IU)
     Route: 042
     Dates: start: 20200524
  11. NOVOEIGHT [Suspect]
     Active Substance: ANTIHEMOPHILIC FACTOR, HUMAN RECOMBINANT
     Indication: PROPHYLAXIS
     Dosage: 1000 IU (1 VIAL OF 1000IU)
     Route: 042
     Dates: start: 20200310
  12. NOVOEIGHT [Suspect]
     Active Substance: ANTIHEMOPHILIC FACTOR, HUMAN RECOMBINANT
     Dosage: 1000 IU (1 VIAL OF 1000IU)
     Route: 042
     Dates: start: 20200316
  13. NOVOEIGHT [Suspect]
     Active Substance: ANTIHEMOPHILIC FACTOR, HUMAN RECOMBINANT
     Dosage: 1000IU (1 VIAL OF 1000IU)
     Route: 042
     Dates: start: 20200408
  14. NOVOEIGHT [Suspect]
     Active Substance: ANTIHEMOPHILIC FACTOR, HUMAN RECOMBINANT
     Dosage: 1000IU (1 VIAL OF 1000IU)
     Route: 042
     Dates: start: 20200506
  15. NOVOEIGHT [Suspect]
     Active Substance: ANTIHEMOPHILIC FACTOR, HUMAN RECOMBINANT
     Dosage: 1000 IU (1 VIAL OF 1000IU)
     Route: 042
     Dates: start: 20200317
  16. NOVOEIGHT [Suspect]
     Active Substance: ANTIHEMOPHILIC FACTOR, HUMAN RECOMBINANT
     Dosage: 1000 IU (1 VIAL OF 1000IU)
     Route: 042
     Dates: start: 20200329
  17. NOVOEIGHT [Suspect]
     Active Substance: ANTIHEMOPHILIC FACTOR, HUMAN RECOMBINANT
     Dosage: 1000IU (1 VIAL OF 1000IU)
     Route: 042
     Dates: start: 20200514
  18. NOVOEIGHT [Suspect]
     Active Substance: ANTIHEMOPHILIC FACTOR, HUMAN RECOMBINANT
     Dosage: 1000IU (1 VIAL OF 1000IU)
     Route: 042
     Dates: start: 20200522
  19. NOVOEIGHT [Suspect]
     Active Substance: ANTIHEMOPHILIC FACTOR, HUMAN RECOMBINANT
     Dosage: 1000 IU (1 VIAL OF 1000IU)
     Route: 042
     Dates: start: 20200312
  20. NOVOEIGHT [Suspect]
     Active Substance: ANTIHEMOPHILIC FACTOR, HUMAN RECOMBINANT
     Dosage: 1000 IU (1 VIAL OF 1000IU)
     Route: 042
     Dates: start: 20200326
  21. NOVOEIGHT [Suspect]
     Active Substance: ANTIHEMOPHILIC FACTOR, HUMAN RECOMBINANT
     Dosage: 1000IU (1 VIAL OF 1000IU)
     Route: 042
     Dates: start: 20200507
  22. NOVOEIGHT [Suspect]
     Active Substance: ANTIHEMOPHILIC FACTOR, HUMAN RECOMBINANT
     Dosage: 1000 IU (1 VIAL OF 1000IU)
     Route: 042
     Dates: start: 20200320
  23. NOVOEIGHT [Suspect]
     Active Substance: ANTIHEMOPHILIC FACTOR, HUMAN RECOMBINANT
     Dosage: 1000IU (1 VIAL OF 1000IU)
     Route: 042
     Dates: start: 20200421
  24. NOVOEIGHT [Suspect]
     Active Substance: ANTIHEMOPHILIC FACTOR, HUMAN RECOMBINANT
     Dosage: 1000IU (1 VIAL OF 1000IU)
     Route: 042
     Dates: start: 20200423
  25. NOVOEIGHT [Suspect]
     Active Substance: ANTIHEMOPHILIC FACTOR, HUMAN RECOMBINANT
     Dosage: 1000IU (1 VIAL OF 1000IU)
     Route: 042
     Dates: start: 20200501
  26. NOVOEIGHT [Suspect]
     Active Substance: ANTIHEMOPHILIC FACTOR, HUMAN RECOMBINANT
     Dosage: 1000IU (1 VIAL OF 1000IU)
     Route: 042
     Dates: start: 20200511
  27. NOVOEIGHT [Suspect]
     Active Substance: ANTIHEMOPHILIC FACTOR, HUMAN RECOMBINANT
     Indication: FACTOR VIII DEFICIENCY
     Dosage: 1000 IU (1 VIAL OF 1000IU)
     Route: 042
     Dates: start: 20200308
  28. NOVOEIGHT [Suspect]
     Active Substance: ANTIHEMOPHILIC FACTOR, HUMAN RECOMBINANT
     Dosage: 1000IU (1 VIAL OF 1000IU)
     Route: 042
     Dates: start: 20200428
  29. NOVOEIGHT [Suspect]
     Active Substance: ANTIHEMOPHILIC FACTOR, HUMAN RECOMBINANT
     Dosage: 1000 IU (1 VIAL OF 1000IU)
     Route: 042
     Dates: start: 20200314
  30. NOVOEIGHT [Suspect]
     Active Substance: ANTIHEMOPHILIC FACTOR, HUMAN RECOMBINANT
     Dosage: 1000 IU (1 VIAL OF 1000IU)
     Route: 042
     Dates: start: 20200323
  31. NOVOEIGHT [Suspect]
     Active Substance: ANTIHEMOPHILIC FACTOR, HUMAN RECOMBINANT
     Dosage: 1000IU (1 VIAL OF 1000IU)
     Route: 042
     Dates: start: 20200410
  32. NOVOEIGHT [Suspect]
     Active Substance: ANTIHEMOPHILIC FACTOR, HUMAN RECOMBINANT
     Dosage: 1000IU (1 VIAL OF 1000IU)
     Route: 042
     Dates: start: 20200504
  33. NOVOEIGHT [Suspect]
     Active Substance: ANTIHEMOPHILIC FACTOR, HUMAN RECOMBINANT
     Dosage: 1000IU (1 VIAL OF 1000IU)
     Route: 042
     Dates: start: 20200517
  34. NOVOEIGHT [Suspect]
     Active Substance: ANTIHEMOPHILIC FACTOR, HUMAN RECOMBINANT
     Dosage: 1000IU (1 VIAL OF 1000IU)
     Route: 042
     Dates: start: 20200520

REACTIONS (9)
  - Haemorrhage [Unknown]
  - Craniocerebral injury [Unknown]
  - Haemarthrosis [Unknown]
  - Muscle haemorrhage [Unknown]
  - Haemarthrosis [Unknown]
  - Haemorrhage [Unknown]
  - Haemarthrosis [Unknown]
  - Haemorrhage [Unknown]
  - Haemarthrosis [Unknown]

NARRATIVE: CASE EVENT DATE: 20200310
